FAERS Safety Report 19634221 (Version 2)
Quarter: 2021Q3

REPORT INFORMATION
  Report Type: Spontaneous
  Country: SE (occurrence: SE)
  Receive Date: 20210729
  Receipt Date: 20210729
  Transmission Date: 20211014
  Serious: Yes (Other)
  Sender: FDA-Public Use
  Company Number: NVSC2021SE167341

PATIENT
  Age: 4 Year
  Sex: Female
  Weight: 18.7 kg

DRUGS (1)
  1. TRAMETINIB [Suspect]
     Active Substance: TRAMETINIB
     Indication: HEPATIC ANGIOSARCOMA
     Dosage: 0.03 MG/KG, QD
     Route: 065

REACTIONS (5)
  - Malignant neoplasm progression [Unknown]
  - Product use in unapproved indication [Unknown]
  - Hepatic angiosarcoma [Unknown]
  - Diarrhoea [Unknown]
  - Rash [Unknown]
